FAERS Safety Report 5670863-0 (Version None)
Quarter: 2008Q1

REPORT INFORMATION
  Report Type: 
  Country: None (occurrence: None)
  Receive Date: 20080318
  Receipt Date: 20080306
  Transmission Date: 20080703
  Serious: Yes (Death)
  Sender: FDA-Public Use
  Company Number: GB-MERCK-0711GBR00069

PATIENT
  Age: 70 Year
  Sex: Male
  Weight: 57 kg

DRUGS (4)
  1. PROSCAR [Suspect]
     Indication: PROSTATOMEGALY
     Route: 048
     Dates: start: 20050901
  2. FLUTICASONE PROPIONATE AND SALMETEROL XINAFOATE [Concomitant]
     Indication: ASTHMA
     Dates: start: 20000210
  3. ALBUTEROL [Concomitant]
  4. MOMETASONE FUROATE [Concomitant]
     Indication: RHINITIS
     Route: 065
     Dates: start: 20020314

REACTIONS (2)
  - GASTRIC CANCER [None]
  - METASTASES TO LIVER [None]
